FAERS Safety Report 5335288-6 (Version None)
Quarter: 2007Q1

REPORT INFORMATION
  Report Type: 
  Country: None (occurrence: None)
  Receive Date: 20070308
  Receipt Date: 20070122
  Transmission Date: 20070707
  Serious: No
  Sender: FDA-Public Use
  Company Number: 2007-BP-00997BP

PATIENT
  Age: 73 Year
  Sex: Female

DRUGS (8)
  1. SPIRIVA [Suspect]
     Indication: CHRONIC OBSTRUCTIVE PULMONARY DISEASE
     Dosage: 18 MCG (18 MCG, 0 CAP QD) IH
     Route: 055
     Dates: start: 20061129, end: 20061213
  2. HYDROCHLOROTHIAZIDE [Concomitant]
  3. ALBUTEROL [Concomitant]
  4. FLOVENT [Concomitant]
  5. TETRACYCLINE [Concomitant]
  6. RANITIDINE [Concomitant]
  7. DILTIAZEM [Concomitant]
  8. LISINOPRIL [Concomitant]

REACTIONS (2)
  - DEHYDRATION [None]
  - MUSCULAR WEAKNESS [None]
